FAERS Safety Report 23474653 (Version 2)
Quarter: 2025Q1

REPORT INFORMATION
  Report Type: Spontaneous
  Country: GB (occurrence: GB)
  Receive Date: 20240204
  Receipt Date: 20250220
  Transmission Date: 20250409
  Serious: Yes (Death, Hospitalization, Other)
  Sender: EXELIXIS
  Company Number: GB-EXELIXIS-CABO-23063887

PATIENT
  Age: 19 Year
  Sex: Male
  Weight: 45 kg

DRUGS (6)
  1. CABOMETYX [Suspect]
     Active Substance: CABOZANTINIB S-MALATE
     Indication: Osteosarcoma
     Route: 048
     Dates: start: 20230317
  2. CABOMETYX [Suspect]
     Active Substance: CABOZANTINIB S-MALATE
     Indication: Off label use
     Route: 048
  3. DOCUSATE SODIUM [Concomitant]
     Active Substance: DOCUSATE SODIUM
     Indication: Constipation
     Dosage: 100 MG, TID
     Route: 048
     Dates: start: 202207
  4. MORPHINE SULFATE [Concomitant]
     Active Substance: MORPHINE SULFATE
     Indication: Pain
     Route: 048
  5. ONDANSETRON [Concomitant]
     Active Substance: ONDANSETRON
     Indication: Nausea
     Dates: start: 202206
  6. TINZAPARIN [Concomitant]
     Active Substance: TINZAPARIN
     Indication: Pulmonary embolism
     Dosage: 15000 [IU], QD
     Route: 058
     Dates: start: 202207

REACTIONS (4)
  - Death [Fatal]
  - Weight decreased [Not Recovered/Not Resolved]
  - Decreased appetite [Unknown]
  - Off label use [Unknown]

NARRATIVE: CASE EVENT DATE: 20230501
